FAERS Safety Report 23397635 (Version 1)
Quarter: 2024Q1

REPORT INFORMATION
  Report Type: Spontaneous
  Country: US (occurrence: None)
  Receive Date: 20240111
  Receipt Date: 20240111
  Transmission Date: 20240410
  Serious: Yes (Hospitalization)
  Sender: FDA-Public Use
  Company Number: None

PATIENT
  Age: 67 Day
  Sex: Female
  Weight: 74.25 kg

DRUGS (1)
  1. JARDIANCE [Suspect]
     Active Substance: EMPAGLIFLOZIN
     Indication: Diabetes mellitus
     Dates: start: 20231001, end: 20231112

REACTIONS (3)
  - Dehydration [None]
  - Large intestinal obstruction [None]
  - Mobility decreased [None]

NARRATIVE: CASE EVENT DATE: 20231112
